FAERS Safety Report 22307098 (Version 1)
Quarter: 2023Q2

REPORT INFORMATION
  Report Type: Spontaneous
  Country: US (occurrence: None)
  Receive Date: 20230511
  Receipt Date: 20230511
  Transmission Date: 20230721
  Serious: No
  Sender: FDA-Public Use
  Company Number: US-ROCHE-3110862

PATIENT
  Age: 42 Year
  Sex: Female
  Weight: 74.002 kg

DRUGS (2)
  1. OCREVUS [Suspect]
     Active Substance: OCRELIZUMAB
     Indication: Multiple sclerosis
     Dosage: 10/OCT/2018; 25/OCT/2018, 30/APR/2019, 25/OCT/2019, HAD AN INFUSION EARLY //2020 (UNKNOWN DATE), 28/
     Route: 042
     Dates: start: 20181010, end: 20220127
  2. HYDROCHLOROTHIAZIDE [Concomitant]
     Active Substance: HYDROCHLOROTHIAZIDE

REACTIONS (1)
  - Peripheral swelling [Not Recovered/Not Resolved]

NARRATIVE: CASE EVENT DATE: 20220127
